FAERS Safety Report 15678039 (Version 1)
Quarter: 2018Q4

REPORT INFORMATION
  Report Type: Spontaneous
  Country: GB (occurrence: US)
  Receive Date: 20181130
  Receipt Date: 20181130
  Transmission Date: 20190205
  Serious: Yes (Hospitalization, Other)
  Sender: FDA-Public Use
  Company Number: GB-AUROBINDO-AUR-APL-2018-057243

PATIENT
  Age: 38 Year
  Sex: Female

DRUGS (2)
  1. PARACETAMOL [Concomitant]
     Active Substance: ACETAMINOPHEN
     Indication: UPPER RESPIRATORY TRACT INFECTION
     Dosage: UNK
     Route: 065
  2. IBUPROFEN. [Suspect]
     Active Substance: IBUPROFEN
     Indication: UPPER RESPIRATORY TRACT INFECTION
     Dosage: UNK
     Route: 065

REACTIONS (13)
  - Eyelid oedema [Recovering/Resolving]
  - Blister [Recovering/Resolving]
  - Toxic epidermal necrolysis [Recovering/Resolving]
  - Eye discharge [Recovering/Resolving]
  - Mouth ulceration [Recovering/Resolving]
  - Dysphagia [Recovering/Resolving]
  - Face oedema [Recovering/Resolving]
  - Rash erythematous [Recovering/Resolving]
  - Mucosal inflammation [Recovering/Resolving]
  - Erythema [Recovering/Resolving]
  - Ocular hyperaemia [Recovering/Resolving]
  - Lip swelling [Recovering/Resolving]
  - Genital ulceration [Recovering/Resolving]
